FAERS Safety Report 13084372 (Version 2)
Quarter: 2017Q1

REPORT INFORMATION
  Report Type: Spontaneous
  Country: FR (occurrence: FR)
  Receive Date: 20170104
  Receipt Date: 20170208
  Transmission Date: 20170428
  Serious: Yes (Other)
  Sender: FDA-Public Use
  Company Number: FR-ABBVIE-17P-056-1827777-00

PATIENT
  Age: 14 Month
  Sex: Male

DRUGS (2)
  1. MICROPAKINE [Suspect]
     Active Substance: VALPROIC ACID
     Dosage: EXTENDED RELEASE
     Route: 048
  2. MICROPAKINE [Suspect]
     Active Substance: VALPROIC ACID
     Indication: EPILEPSY
     Dosage: EXTENDED RELEASE
     Route: 048
     Dates: start: 20161129, end: 20161229

REACTIONS (3)
  - Abnormal behaviour [Unknown]
  - Prescribed overdose [Unknown]
  - Overdose [Unknown]
